FAERS Safety Report 8873242 (Version 1)
Quarter: 2012Q4

REPORT INFORMATION
  Report Type: 
  Country: US (occurrence: US)
  Receive Date: 20121023
  Receipt Date: 20121023
  Transmission Date: 20130627
  Serious: Yes (Other)
  Sender: FDA-Public Use
  Company Number: US-ASTELLAS-2012US005312

PATIENT
  Sex: Female
  Weight: 63 kg

DRUGS (7)
  1. PROGRAF [Suspect]
     Indication: LIVER TRANSPLANT
     Dosage: UNK
     Route: 065
  2. METOPROLOL [Concomitant]
     Indication: HYPERTENSION
     Dosage: 25 mg, bid
     Route: 065
  3. NEURONTIN [Concomitant]
     Indication: HYPOAESTHESIA
     Dosage: 300 mg, tid
     Route: 065
     Dates: start: 2004
  4. ASPIRIN [Concomitant]
     Indication: CARDIAC DISORDER
     Dosage: 81 mg, UID/QD
     Route: 065
  5. XANAX [Concomitant]
     Indication: ANXIETY
     Dosage: 1 mg, tid
     Route: 065
  6. SIMVASTATIN [Concomitant]
     Indication: PRODUCT USED FOR UNKNOWN INDICATION
     Dosage: 40 mg, UID/QD
     Route: 065
  7. VITAMIN B-12 [Concomitant]
     Indication: PRODUCT USED FOR UNKNOWN INDICATION
     Dosage: 1000 IU, UID/QD
     Route: 065

REACTIONS (2)
  - Renal function test abnormal [Unknown]
  - Malaise [Unknown]
